FAERS Safety Report 19655147 (Version 1)
Quarter: 2021Q3

REPORT INFORMATION
  Report Type: Spontaneous
  Country: US (occurrence: US)
  Receive Date: 20210803
  Receipt Date: 20210803
  Transmission Date: 20211014
  Serious: No
  Sender: FDA-Public Use
  Company Number: US-JNJFOC-20210761183

PATIENT
  Sex: Female

DRUGS (1)
  1. SPRAVATO [Suspect]
     Active Substance: ESKETAMINE
     Indication: DEPRESSION
     Dosage: 54 OR 56 MILLIGRAM TWICE A WEEK
     Route: 065

REACTIONS (4)
  - Dysuria [Unknown]
  - Hypertension [Unknown]
  - Headache [Unknown]
  - Dyspnoea [Unknown]
